FAERS Safety Report 18543869 (Version 1)
Quarter: 2020Q4

REPORT INFORMATION
  Report Type: Not Available
  Country: US (occurrence: US)
  Receive Date: 20201124
  Receipt Date: 20201124
  Transmission Date: 20210114
  Serious: No
  Sender: FDA-Public Use
  Company Number: US-NEUROCRINE BIOSCIENCES INC.-2020NBI04149

PATIENT
  Age: 71 Year
  Sex: Female

DRUGS (8)
  1. SAPHRIS [Concomitant]
     Active Substance: ASENAPINE MALEATE
  2. BENZTROPINE. [Concomitant]
     Active Substance: BENZTROPINE
  3. INGREZZA [Suspect]
     Active Substance: VALBENAZINE
     Indication: TARDIVE DYSKINESIA
     Route: 048
     Dates: start: 20200922, end: 2020
  4. ARICEPT [Concomitant]
     Active Substance: DONEPEZIL HYDROCHLORIDE
  5. CLONIDINE. [Concomitant]
     Active Substance: CLONIDINE
  6. GABAPENTIN. [Concomitant]
     Active Substance: GABAPENTIN
  7. QUETIAPINE. [Concomitant]
     Active Substance: QUETIAPINE
  8. PRISTIQ EXTENDED-RELEASE [Concomitant]
     Active Substance: DESVENLAFAXINE SUCCINATE

REACTIONS (1)
  - Adverse drug reaction [Unknown]

NARRATIVE: CASE EVENT DATE: 2020
